FAERS Safety Report 24576739 (Version 1)
Quarter: 2024Q4

REPORT INFORMATION
  Report Type: Spontaneous
  Country: US (occurrence: None)
  Receive Date: 20241104
  Receipt Date: 20241104
  Transmission Date: 20250115
  Serious: No
  Sender: Public
  Company Number: None

PATIENT
  Age: 67 Year
  Sex: Male
  Weight: 157.5 kg

DRUGS (11)
  1. MOUNJARO [Suspect]
     Active Substance: TIRZEPATIDE
     Indication: Diabetes mellitus
     Dosage: OTHER QUANTITY : 1 INJECTION(S);?OTHER FREQUENCY : 1 PER WEEK;?
     Route: 058
     Dates: start: 20241006
  2. LISINOPRIL [Concomitant]
     Active Substance: LISINOPRIL
  3. JARDIANCE [Concomitant]
     Active Substance: EMPAGLIFLOZIN
  4. AMLODIPINE [Concomitant]
     Active Substance: AMLODIPINE BESYLATE
  5. FLUOXETINE [Concomitant]
     Active Substance: FLUOXETINE HYDROCHLORIDE
  6. ARMODAFINIL [Concomitant]
     Active Substance: ARMODAFINIL
  7. XARELTO [Concomitant]
     Active Substance: RIVAROXABAN
  8. LANTUS [Concomitant]
     Active Substance: INSULIN GLARGINE
  9. Areds2+Multivitamin [Concomitant]
  10. calcium+Magnesium+Zinc [Concomitant]
  11. VITAMIN D3 [Concomitant]
     Active Substance: CHOLECALCIFEROL

REACTIONS (4)
  - Fatigue [None]
  - Myalgia [None]
  - Somnolence [None]
  - Brain fog [None]

NARRATIVE: CASE EVENT DATE: 20241103
